FAERS Safety Report 10162930 (Version 3)
Quarter: 2014Q2

REPORT INFORMATION
  Report Type: Spontaneous
  Country: US (occurrence: US)
  Receive Date: 20140509
  Receipt Date: 20140523
  Transmission Date: 20141212
  Serious: Yes (Other)
  Sender: FDA-Public Use
  Company Number: US-BAYER-2014-062026

PATIENT
  Age: 46 Year
  Sex: Male
  Weight: 56.24 kg

DRUGS (3)
  1. RID 1-2-3 SYSTEM [Suspect]
     Indication: LICE INFESTATION
     Dosage: 1 DOSE, ONCE
     Dates: start: 20140423, end: 20140423
  2. CLOBETASOL PROPIONATE [Concomitant]
  3. ELIDEL [Concomitant]

REACTIONS (16)
  - Haematochezia [Not Recovered/Not Resolved]
  - Pharyngeal inflammation [Not Recovered/Not Resolved]
  - Dyspepsia [Not Recovered/Not Resolved]
  - Vomiting [Recovered/Resolved]
  - Burning sensation [Not Recovered/Not Resolved]
  - Eye irritation [Not Recovered/Not Resolved]
  - Incorrect drug administration duration [None]
  - Accidental exposure to product [None]
  - Intentional product misuse [None]
  - Throat irritation [Not Recovered/Not Resolved]
  - Oesophageal pain [Not Recovered/Not Resolved]
  - Chest pain [Not Recovered/Not Resolved]
  - Anorectal discomfort [Not Recovered/Not Resolved]
  - Genital burning sensation [Not Recovered/Not Resolved]
  - Nausea [Not Recovered/Not Resolved]
  - Malaise [None]
